FAERS Safety Report 20690363 (Version 2)
Quarter: 2022Q2

REPORT INFORMATION
  Report Type: Spontaneous
  Country: US (occurrence: US)
  Receive Date: 20220408
  Receipt Date: 20220411
  Transmission Date: 20220720
  Serious: Yes (Other)
  Sender: FDA-Public Use
  Company Number: US-MLMSERVICE-20220328-3451934-1

PATIENT
  Age: 21 Year
  Sex: Male
  Weight: 81 kg

DRUGS (1)
  1. RISPERIDONE [Suspect]
     Active Substance: RISPERIDONE
     Indication: Schizophrenia
     Dosage: SEVERAL MONTH TRIALS
     Route: 048
     Dates: end: 20181118

REACTIONS (2)
  - Drug ineffective [Unknown]
  - Hyperprolactinaemia [Recovered/Resolved]

NARRATIVE: CASE EVENT DATE: 20180906
